FAERS Safety Report 7985155-4 (Version None)
Quarter: 2011Q4

REPORT INFORMATION
  Report Type: 
  Country: None (occurrence: None)
  Receive Date: 20111216
  Receipt Date: 20111214
  Transmission Date: 20120403
  Serious: Yes (Death, Other)
  Sender: FDA-Public Use
  Company Number: PHHY2011NZ098879

PATIENT
  Sex: Female

DRUGS (8)
  1. FUROSEMIDE [Concomitant]
     Dosage: 40 MG, BID
  2. METOPROLOL SUCCINATE [Concomitant]
     Dosage: 23.75 MG, AT 0800 HRS
  3. CLOZARIL [Suspect]
     Indication: SCHIZOAFFECTIVE DISORDER
     Dosage: 75 MG, NOCTE
     Dates: start: 20070702
  4. THIAMINE HCL [Concomitant]
     Dosage: 50 MG, AT 0800 HRS
  5. ASPIRIN [Concomitant]
     Dosage: 75 MG
  6. BETA BLOCKING AGENTS [Concomitant]
  7. LAXSOL [Concomitant]
  8. PANTOPRAZOLE [Concomitant]
     Dosage: 40 MG, AT 0800 HRS

REACTIONS (4)
  - CHOKING [None]
  - MYOCARDIAL ISCHAEMIA [None]
  - CARDIAC ARREST [None]
  - CIRCULATORY COLLAPSE [None]
